FAERS Safety Report 13508223 (Version 3)
Quarter: 2017Q2

REPORT INFORMATION
  Report Type: Spontaneous
  Country: IT (occurrence: IT)
  Receive Date: 20170503
  Receipt Date: 20170525
  Transmission Date: 20170830
  Serious: Yes (Other)
  Sender: FDA-Public Use
  Company Number: PHHY2017IT063486

PATIENT
  Age: 40 Year
  Sex: Male

DRUGS (9)
  1. SATIVEX [Suspect]
     Active Substance: NABIXIMOLS
     Dosage: 1 DF, QID
     Route: 002
     Dates: start: 20161221, end: 2017
  2. VITAMIN D [Concomitant]
     Active Substance: CHOLECALCIFEROL
     Indication: SUPPLEMENTATION THERAPY
     Route: 065
  3. DESMODIUM MOLLICULUM [Concomitant]
     Indication: SUPPLEMENTATION THERAPY
     Dosage: UNK
     Route: 065
  4. COLOSTRUM [Concomitant]
     Indication: SUPPLEMENTATION THERAPY
     Route: 065
  5. MAGNESIUM [Concomitant]
     Active Substance: MAGNESIUM
     Indication: SUPPLEMENTATION THERAPY
     Route: 065
  6. OMEGA 3 [Concomitant]
     Active Substance: OMEGA-3 FATTY ACIDS
     Indication: SUPPLEMENTATION THERAPY
     Dosage: UNK
     Route: 065
  7. DIMETICONE [Concomitant]
     Active Substance: DIMETHICONE
     Indication: SUPPLEMENTATION THERAPY
     Dosage: UNK
     Route: 065
  8. GILENYA [Suspect]
     Active Substance: FINGOLIMOD HYDROCHLORIDE
     Indication: MULTIPLE SCLEROSIS
     Dosage: 0.5 MG, QD
     Route: 065
     Dates: start: 20150313
  9. SATIVEX [Suspect]
     Active Substance: NABIXIMOLS
     Indication: MULTIPLE SCLEROSIS
     Dosage: 1 DF, QID
     Route: 002
     Dates: start: 20150313

REACTIONS (6)
  - Depressed mood [Recovering/Resolving]
  - Drug ineffective [Recovering/Resolving]
  - Pain in jaw [Recovering/Resolving]
  - Psychomotor retardation [Recovering/Resolving]
  - Exercise tolerance decreased [Recovering/Resolving]
  - Depression [Recovering/Resolving]

NARRATIVE: CASE EVENT DATE: 20150401
